FAERS Safety Report 13627896 (Version 1)
Quarter: 2017Q2

REPORT INFORMATION
  Report Type: Spontaneous
  Country: US (occurrence: US)
  Receive Date: 20170607
  Receipt Date: 20170607
  Transmission Date: 20170830
  Serious: No
  Sender: FDA-Public Use
  Company Number: None

PATIENT
  Age: 36 Year
  Sex: Female
  Weight: 108 kg

DRUGS (1)
  1. ARMODAFINIL. [Suspect]
     Active Substance: ARMODAFINIL
     Indication: NARCOLEPSY
     Dosage: ?          QUANTITY:30 TABLET(S);?
     Route: 048
     Dates: start: 20170510, end: 20170607

REACTIONS (6)
  - Drug ineffective [None]
  - Product substitution issue [None]
  - Disease recurrence [None]
  - Hypersomnia [None]
  - Sleep attacks [None]
  - Impaired driving ability [None]

NARRATIVE: CASE EVENT DATE: 20170522
